FAERS Safety Report 4752130-2 (Version None)
Quarter: 2005Q3

REPORT INFORMATION
  Report Type: 
  Country: None (occurrence: None)
  Receive Date: 20050825
  Receipt Date: 20050815
  Transmission Date: 20060218
  Serious: Yes (Death)
  Sender: FDA-Public Use
  Company Number: AU-JNJFOC-20050804715

PATIENT
  Sex: Male

DRUGS (4)
  1. REOPRO [Suspect]
     Indication: DRUG USE FOR UNKNOWN INDICATION
     Route: 042
  2. HEPARIN [Concomitant]
  3. CLOPIDOGREL BISULFATE [Concomitant]
  4. ASPIRIN [Concomitant]

REACTIONS (1)
  - ARTERIAL HAEMORRHAGE [None]
